FAERS Safety Report 4545721-5 (Version None)
Quarter: 2005Q1

REPORT INFORMATION
  Report Type: 
  Country: None (occurrence: None)
  Receive Date: 20050104
  Receipt Date: 20050104
  Transmission Date: 20050727
  Serious: Yes (Hospitalization)
  Sender: FDA-Public Use
  Company Number: None

PATIENT
  Sex: Male

DRUGS (8)
  1. THALIDOMIDE [Suspect]
     Indication: PROSTATE CANCER
     Dosage: 100 MG / DAILY / PO
     Route: 048
     Dates: start: 20041014
  2. THALIDOMIDE [Suspect]
     Indication: PROSTATE CANCER
     Dosage: 100 MG / DAILY / PO
     Route: 048
     Dates: start: 20041111
  3. ZOCOR [Concomitant]
  4. METFORMIN HCL [Concomitant]
  5. IMDUR [Concomitant]
  6. CELEBREX [Concomitant]
  7. DURAGESIC [Concomitant]
  8. AVELOX [Concomitant]

REACTIONS (4)
  - DELUSION [None]
  - DEPRESSED LEVEL OF CONSCIOUSNESS [None]
  - PARANOIA [None]
  - SOMNOLENCE [None]
